FAERS Safety Report 6354057-1 (Version None)
Quarter: 2009Q3

REPORT INFORMATION
  Report Type: 
  Country: None (occurrence: None)
  Receive Date: 20090914
  Receipt Date: 20090909
  Transmission Date: 20100115
  Serious: Yes (Other)
  Sender: FDA-Public Use
  Company Number: ZA-JNJFOC-20090903155

PATIENT
  Sex: Female

DRUGS (2)
  1. CONCERTA [Suspect]
     Indication: ATTENTION DEFICIT/HYPERACTIVITY DISORDER
     Route: 048
  2. ZOLOFT [Suspect]
     Indication: ANXIETY
     Route: 065

REACTIONS (2)
  - DRUG INEFFECTIVE [None]
  - EPILEPSY [None]
